FAERS Safety Report 19786976 (Version 1)
Quarter: 2021Q3

REPORT INFORMATION
  Report Type: Spontaneous
  Country: DE (occurrence: JP)
  Receive Date: 20210903
  Receipt Date: 20210903
  Transmission Date: 20211014
  Serious: Yes (Life-Threatening, Other)
  Sender: FDA-Public Use
  Company Number: JP-ELI_LILLY_AND_COMPANY-JP202109000927

PATIENT
  Sex: Female

DRUGS (2)
  1. ERBITUX [Suspect]
     Active Substance: CETUXIMAB
     Indication: OROPHARYNGEAL CANCER RECURRENT
     Dosage: UNK UNK, UNKNOWN
     Route: 041
  2. PACLITAXEL. [Concomitant]
     Active Substance: PACLITAXEL
     Indication: OROPHARYNGEAL CANCER RECURRENT
     Dosage: UNK UNK, UNKNOWN
     Route: 065

REACTIONS (6)
  - Pneumonia aspiration [Unknown]
  - Off label use [Unknown]
  - Renal impairment [Unknown]
  - Neutrophil count decreased [Unknown]
  - Immune-mediated myocarditis [Recovering/Resolving]
  - Hepatic function abnormal [Unknown]
